FAERS Safety Report 16376390 (Version 2)
Quarter: 2019Q2

REPORT INFORMATION
  Report Type: Report from Study
  Country: US (occurrence: US)
  Receive Date: 20190531
  Receipt Date: 20190603
  Transmission Date: 20190711
  Serious: Yes (Hospitalization)
  Sender: FDA-Public Use
  Company Number: US-SA-2019SA147149

PATIENT
  Age: 63 Year
  Sex: Female

DRUGS (1)
  1. INSULIN GLARGINE [Suspect]
     Active Substance: INSULIN GLARGINE
     Indication: TYPE 2 DIABETES MELLITUS
     Dosage: 90 U, HS
     Route: 058
     Dates: start: 1992

REACTIONS (7)
  - Heart rate increased [Recovered/Resolved]
  - Injection site scab [Recovered/Resolved]
  - Injection site reaction [Recovered/Resolved]
  - Product dose omission [Not Recovered/Not Resolved]
  - Injection site pruritus [Recovered/Resolved]
  - Swelling [Recovered/Resolved]
  - Injection site erythema [Recovered/Resolved]
